FAERS Safety Report 7781422-8 (Version None)
Quarter: 2011Q3

REPORT INFORMATION
  Report Type: 
  Country: None (occurrence: None)
  Receive Date: 20110923
  Receipt Date: 20110919
  Transmission Date: 20111222
  Serious: Yes (Hospitalization, Other)
  Sender: FDA-Public Use
  Company Number: NSR_00265_2011

PATIENT
  Age: 31 Year
  Sex: Female

DRUGS (2)
  1. PROPRANOLOL [Suspect]
     Indication: PRODUCT USED FOR UNKNOWN INDICATION
     Dosage: (3.2 G ORAL)
     Route: 048
  2. ETHANOL (ETHANOL) [Suspect]
     Indication: PRODUCT USED FOR UNKNOWN INDICATION
     Dosage: (DF ORAL)
     Route: 048

REACTIONS (17)
  - OXYGEN SATURATION DECREASED [None]
  - TOXICITY TO VARIOUS AGENTS [None]
  - HYPOVENTILATION [None]
  - HYPOTENSION [None]
  - CONVULSION [None]
  - BLOOD GLUCOSE INCREASED [None]
  - ALCOHOL POISONING [None]
  - ELECTROCARDIOGRAM P WAVE ABNORMAL [None]
  - COMA [None]
  - HYPOGLYCAEMIA [None]
  - TACHYARRHYTHMIA [None]
  - RHYTHM IDIOVENTRICULAR [None]
  - HEART RATE DECREASED [None]
  - ELECTROCARDIOGRAM QRS COMPLEX PROLONGED [None]
  - GENERAL PHYSICAL HEALTH DETERIORATION [None]
  - INTENTIONAL OVERDOSE [None]
  - SUPRAVENTRICULAR TACHYCARDIA [None]
